FAERS Safety Report 8823820 (Version 1)
Quarter: 2012Q4

REPORT INFORMATION
  Report Type: 
  Country: US (occurrence: US)
  Receive Date: 20121003
  Receipt Date: 20121003
  Transmission Date: 20130627
  Serious: No
  Sender: FDA-Public Use
  Company Number: US-PFIZER INC-2012243714

PATIENT
  Sex: Female

DRUGS (2)
  1. RELPAX [Suspect]
     Indication: MIGRAINE
     Dosage: 40 mg, daily
     Dates: start: 20120930
  2. IMITREX [Suspect]
     Indication: MIGRAINE
     Dosage: 25 mg
     Dates: start: 201209, end: 201209

REACTIONS (2)
  - Drug ineffective [Unknown]
  - Migraine [Unknown]
